FAERS Safety Report 19019319 (Version 3)
Quarter: 2021Q3

REPORT INFORMATION
  Report Type: Report from Study
  Country: US (occurrence: US)
  Receive Date: 20210317
  Receipt Date: 20210930
  Transmission Date: 20211014
  Serious: No
  Sender: FDA-Public Use
  Company Number: NVSC2021US060229

PATIENT
  Age: 32 Year
  Sex: Female
  Weight: 75 kg

DRUGS (3)
  1. ILARIS [Suspect]
     Active Substance: CANAKINUMAB
     Dosage: 300 MG, Q4W
     Route: 058
     Dates: start: 20200901
  2. ILARIS [Suspect]
     Active Substance: CANAKINUMAB
     Indication: STILL^S DISEASE
     Dosage: 245 MG, EVERY 4 WEEKS
     Route: 058
  3. ILARIS [Suspect]
     Active Substance: CANAKINUMAB
     Dosage: 247.5 MG, Q 4 WEEKS
     Route: 058
     Dates: start: 20210311

REACTIONS (4)
  - Condition aggravated [Unknown]
  - Normal newborn [Unknown]
  - Exposure during pregnancy [Unknown]
  - Product prescribing error [Unknown]

NARRATIVE: CASE EVENT DATE: 20210308
